FAERS Safety Report 6600518-7 (Version None)
Quarter: 2010Q1

REPORT INFORMATION
  Report Type: 
  Country: None (occurrence: None)
  Receive Date: 20100224
  Receipt Date: 20100222
  Transmission Date: 20100710
  Serious: Yes (Other)
  Sender: FDA-Public Use
  Company Number: DE-MERCK-1002DEU00107

PATIENT
  Age: 49 Year
  Sex: Male
  Weight: 90 kg

DRUGS (3)
  1. JANUMET [Suspect]
     Indication: DIABETES MELLITUS INADEQUATE CONTROL
     Route: 048
     Dates: start: 20090421, end: 20091102
  2. JANUMET [Suspect]
     Route: 048
     Dates: start: 20091124, end: 20100121
  3. JANUVIA [Suspect]
     Indication: DIABETES MELLITUS INADEQUATE CONTROL
     Route: 048
     Dates: start: 20070714, end: 20090420

REACTIONS (2)
  - BLOOD AMYLASE INCREASED [None]
  - LIPASE INCREASED [None]
